FAERS Safety Report 7557687-4 (Version None)
Quarter: 2011Q2

REPORT INFORMATION
  Report Type: 
  Country: None (occurrence: None)
  Receive Date: 20110620
  Receipt Date: 20110606
  Transmission Date: 20111010
  Serious: Yes (Hospitalization, Other)
  Sender: FDA-Public Use
  Company Number: US-CELGENEUS-163-21880-11052446

PATIENT
  Sex: Female

DRUGS (14)
  1. XANAX [Concomitant]
     Dosage: .5 MILLIGRAM
     Route: 048
  2. GLIMEPIRIDE [Concomitant]
     Dosage: 2 MILLIGRAM
     Route: 048
  3. NIFEDIPINE [Concomitant]
     Dosage: 60 MILLIGRAM
     Route: 065
  4. VITAMIN E [Concomitant]
     Dosage: 400 UNITS
     Route: 065
  5. SYMBICORT [Concomitant]
     Dosage: 160/4.5 MCG
     Route: 055
  6. NEXIUM [Concomitant]
     Dosage: 40 MILLIGRAM
     Route: 065
  7. GABAPENTIN [Concomitant]
     Dosage: 300 MILLIGRAM
     Route: 065
  8. KLOR-CON M20 [Concomitant]
     Route: 065
  9. ASPIRIN [Concomitant]
     Dosage: 81 MILLIGRAM
     Route: 065
  10. TRAMADOL HCL [Concomitant]
     Route: 065
  11. ERGOCALCIFEROL [Concomitant]
     Dosage: 50,000 UNITS
     Route: 065
  12. OXYCODONE/ACETAMINOPHEN [Concomitant]
     Dosage: 5/325MG
     Route: 065
  13. REVLIMID [Suspect]
     Indication: MYELODYSPLASTIC SYNDROME
     Dosage: 5 MILLIGRAM
     Route: 048
     Dates: start: 20110208
  14. ZOCOR [Concomitant]
     Dosage: 40 MILLIGRAM
     Route: 065

REACTIONS (2)
  - CONVULSION [None]
  - INTERVERTEBRAL DISC PROTRUSION [None]
